FAERS Safety Report 9994277 (Version 1)
Quarter: 2014Q1

REPORT INFORMATION
  Report Type: Spontaneous
  Country: US (occurrence: US)
  Receive Date: 20140310
  Receipt Date: 20140310
  Transmission Date: 20141002
  Serious: Yes (Hospitalization)
  Sender: FDA-Public Use
  Company Number: US-BAXTER-2014BAX010960

PATIENT
  Age: 72 Year
  Sex: Female

DRUGS (2)
  1. DIANEAL LOW CALCIUM (ULTRABAG) [Suspect]
     Indication: CONGENITAL CYSTIC KIDNEY DISEASE
     Route: 033
     Dates: start: 201208
  2. DIANEAL LOW CALCIUM (ULTRABAG) [Suspect]
     Indication: CONGENITAL CYSTIC KIDNEY DISEASE
     Route: 033
     Dates: start: 201208

REACTIONS (4)
  - Hypophagia [Recovering/Resolving]
  - Decreased activity [Recovering/Resolving]
  - Fluid overload [Recovering/Resolving]
  - Malaise [Recovering/Resolving]
